FAERS Safety Report 9302615 (Version 2)
Quarter: 2013Q3

REPORT INFORMATION
  Report Type: Report from Study
  Country: AR (occurrence: AR)
  Receive Date: 20130522
  Receipt Date: 20130710
  Transmission Date: 20140515
  Serious: Yes (Death, Hospitalization)
  Sender: FDA-Public Use
  Company Number: AR-ROCHE-1227009

PATIENT
  Sex: Male

DRUGS (1)
  1. RANIBIZUMAB [Suspect]
     Indication: NEOVASCULARISATION
     Route: 050
     Dates: start: 2010

REACTIONS (4)
  - Cardiac arrest [Fatal]
  - Hepatic cancer [Unknown]
  - Visual acuity reduced [Unknown]
  - Malaise [Unknown]
